FAERS Safety Report 20678183 (Version 1)
Quarter: 2022Q2

REPORT INFORMATION
  Report Type: Spontaneous
  Country: US (occurrence: US)
  Receive Date: 20220406
  Receipt Date: 20220406
  Transmission Date: 20220721
  Serious: No
  Sender: FDA-Public Use
  Company Number: US-SUNOVION-2022SUN000990

PATIENT
  Age: 65 Year

DRUGS (1)
  1. LUNESTA [Suspect]
     Active Substance: ESZOPICLONE
     Dosage: 3 MG, UNK
     Route: 048

REACTIONS (4)
  - Middle insomnia [Unknown]
  - Drug ineffective [Unknown]
  - Memory impairment [Unknown]
  - Overdose [Unknown]
